FAERS Safety Report 5027710-X (Version None)
Quarter: 2006Q2

REPORT INFORMATION
  Report Type: 
  Country: None (occurrence: None)
  Receive Date: 20060428
  Receipt Date: 20060207
  Transmission Date: 20061013
  Serious: No
  Sender: FDA-Public Use
  Company Number: COT_0407_2006

PATIENT
  Age: 57 Year
  Sex: Female
  Weight: 85.7298 kg

DRUGS (12)
  1. VENTAVIS [Suspect]
     Indication: PULMONARY HYPERTENSION
     Dosage: 5 MCG 6XD IH
     Dates: start: 20051216
  2. PREMARIN [Concomitant]
  3. GLUCOPHAGE [Concomitant]
  4. ALLEGRA [Concomitant]
  5. DARVOCET [Concomitant]
  6. DEMADEX [Concomitant]
  7. DIOVAN [Concomitant]
  8. NEXIUM [Concomitant]
  9. TYLENOL (CAPLET) [Concomitant]
  10. XANAX [Concomitant]
  11. GLUCOTROL [Concomitant]
  12. ELAVIL [Concomitant]

REACTIONS (4)
  - CHAPPED LIPS [None]
  - DYSGEUSIA [None]
  - STOMATITIS [None]
  - TONGUE DRY [None]
